FAERS Safety Report 22119735 (Version 2)
Quarter: 2023Q1

REPORT INFORMATION
  Report Type: Spontaneous
  Country: US (occurrence: US)
  Receive Date: 20230321
  Receipt Date: 20230331
  Transmission Date: 20230417
  Serious: No
  Sender: FDA-Public Use
  Company Number: US-PFIZER INC-PV202300024318

PATIENT

DRUGS (2)
  1. GENOTROPIN [Suspect]
     Active Substance: SOMATROPIN
     Dosage: 1.1 MG, ALTERNATE DAY(1.1 MG UNDER THE SKIN ONCE A DAY. ALTERNATE 1.0MG AN 1.2MG EVERY OTHER DAY)
     Route: 058
  2. GENOTROPIN [Suspect]
     Active Substance: SOMATROPIN
     Dosage: UNK, ALTERNATE DAY (ALTERNATE 1.0MG AN 1.2MG EVERY OTHER DAY)
     Route: 058

REACTIONS (3)
  - Drug dose omission by device [Unknown]
  - Device issue [Unknown]
  - Product prescribing error [Unknown]
